FAERS Safety Report 5764852-5 (Version None)
Quarter: 2008Q2

REPORT INFORMATION
  Report Type: 
  Country: None (occurrence: None)
  Receive Date: 20080611
  Receipt Date: 20080529
  Transmission Date: 20081010
  Serious: Yes (Hospitalization)
  Sender: FDA-Public Use
  Company Number: US-ELI_LILLY_AND_COMPANY-US200806000416

PATIENT
  Sex: Female

DRUGS (7)
  1. FORTEO [Suspect]
     Dates: start: 20060101
  2. FORTEO [Suspect]
     Dates: start: 20080401
  3. SEROQUEL [Concomitant]
  4. REQUIP [Concomitant]
  5. SELEGILINE HCL [Concomitant]
  6. LYRICA [Concomitant]
  7. PERCOCET [Concomitant]

REACTIONS (1)
  - LOSS OF CONSCIOUSNESS [None]
